FAERS Safety Report 23308937 (Version 6)
Quarter: 2024Q4

REPORT INFORMATION
  Report Type: Report from Study
  Country: US (occurrence: US)
  Receive Date: 20231218
  Receipt Date: 20241121
  Transmission Date: 20250114
  Serious: Yes (Other)
  Sender: TAKEDA
  Company Number: US-TAKEDA-2023TUS119821

PATIENT
  Sex: Female

DRUGS (2)
  1. PONATINIB [Suspect]
     Active Substance: PONATINIB
     Indication: Acute lymphocytic leukaemia
     Dosage: 15 MILLIGRAM, QD
     Dates: start: 202304
  2. PONATINIB [Suspect]
     Active Substance: PONATINIB
     Dosage: UNK

REACTIONS (5)
  - Deafness [Not Recovered/Not Resolved]
  - Hepatic pain [Unknown]
  - Product use issue [Unknown]
  - Hepatomegaly [Unknown]
  - Pyrexia [Unknown]
